FAERS Safety Report 23424470 (Version 1)
Quarter: 2024Q1

REPORT INFORMATION
  Report Type: Report from Study
  Country: JP (occurrence: JP)
  Receive Date: 20240120
  Receipt Date: 20240120
  Transmission Date: 20240410
  Serious: Yes (Other)
  Sender: FDA-Public Use
  Company Number: JP-VKT-000427

PATIENT

DRUGS (2)
  1. TADALAFIL [Suspect]
     Active Substance: TADALAFIL
     Indication: Hypoxic ischaemic encephalopathy neonatal
     Route: 064
  2. TADALAFIL [Suspect]
     Active Substance: TADALAFIL
     Indication: Hypoxia
     Route: 064

REACTIONS (2)
  - Meconium aspiration syndrome [Unknown]
  - Foetal exposure during pregnancy [Unknown]
